FAERS Safety Report 12382735 (Version 3)
Quarter: 2016Q3

REPORT INFORMATION
  Report Type: Spontaneous
  Country: GB (occurrence: GB)
  Receive Date: 20160518
  Receipt Date: 20160802
  Transmission Date: 20161109
  Serious: Yes (Other)
  Sender: FDA-Public Use
  Company Number: GB-ELI_LILLY_AND_COMPANY-GB201605004722

PATIENT
  Age: 15 Year
  Sex: Male

DRUGS (3)
  1. FLUOXETINE HYDROCHLORIDE. [Suspect]
     Active Substance: FLUOXETINE HYDROCHLORIDE
     Indication: ANXIETY
     Dosage: 30 MG, QD
     Route: 048
     Dates: start: 20160331
  2. LYMECYCLINE [Concomitant]
     Active Substance: LYMECYCLINE
     Indication: ACNE
     Dosage: UNK, UNKNOWN
     Route: 065
     Dates: start: 201409
  3. FLUOXETINE HYDROCHLORIDE. [Suspect]
     Active Substance: FLUOXETINE HYDROCHLORIDE
     Indication: DEPRESSION
     Dosage: 20 MG, QD
     Route: 048
     Dates: start: 20160215

REACTIONS (4)
  - Depressed mood [Recovering/Resolving]
  - Drug ineffective [Unknown]
  - Suicide attempt [Recovering/Resolving]
  - Intentional self-injury [Recovering/Resolving]

NARRATIVE: CASE EVENT DATE: 201603
